FAERS Safety Report 12548262 (Version 1)
Quarter: 2016Q3

REPORT INFORMATION
  Report Type: Spontaneous
  Country: GB (occurrence: GB)
  Receive Date: 20160712
  Receipt Date: 20160712
  Transmission Date: 20161109
  Serious: Yes (Other)
  Sender: FDA-Public Use
  Company Number: GB-SA-2016SA123748

PATIENT
  Sex: Male

DRUGS (1)
  1. SEVELAMER SALT NOT SPECIFIED [Suspect]
     Active Substance: SEVELAMER
     Route: 065

REACTIONS (3)
  - Somnolence [Unknown]
  - Diarrhoea [Unknown]
  - Drug dispensing error [Unknown]
